FAERS Safety Report 8938037 (Version 2)
Quarter: 2012Q4

REPORT INFORMATION
  Report Type: 
  Country: US (occurrence: US)
  Receive Date: 20121121
  Receipt Date: 20121212
  Transmission Date: 20130627
  Serious: Yes (Death)
  Sender: FDA-Public Use
  Company Number: US-ASTELLAS-CID000000002117805

PATIENT
  Age: 56 Year
  Sex: Male

DRUGS (1)
  1. TARCEVA [Suspect]
     Indication: LUNG NEOPLASM MALIGNANT
     Route: 048
     Dates: start: 20050727, end: 20050809

REACTIONS (4)
  - Lung neoplasm malignant [Fatal]
  - Dermatitis acneiform [Unknown]
  - Nausea [Unknown]
  - Vomiting [Unknown]
